FAERS Safety Report 6602772-4 (Version None)
Quarter: 2010Q1

REPORT INFORMATION
  Report Type: 
  Country: None (occurrence: None)
  Receive Date: 20100226
  Receipt Date: 20100215
  Transmission Date: 20100710
  Serious: Yes (Death)
  Sender: FDA-Public Use
  Company Number: GB-RANBAXY-2008RR-17264

PATIENT
  Age: 5 Year
  Sex: Female

DRUGS (2)
  1. PARACETAMOL [Suspect]
     Indication: VIRAL INFECTION
     Dosage: 2 DF, UNK
     Route: 048
  2. BISMUTH SUBSALICYLATE IN OIL INJ [Concomitant]
     Route: 048

REACTIONS (4)
  - DRUG TOXICITY [None]
  - HEPATIC NECROSIS [None]
  - INCORRECT DOSE ADMINISTERED [None]
  - WRONG DRUG ADMINISTERED [None]
